FAERS Safety Report 19769483 (Version 1)
Quarter: 2021Q3

REPORT INFORMATION
  Report Type: Report from Study
  Country: US (occurrence: US)
  Receive Date: 20210831
  Receipt Date: 20210831
  Transmission Date: 20211014
  Serious: Yes (Hospitalization)
  Sender: FDA-Public Use
  Company Number: US-MYLANLABS-2021M1057329

PATIENT
  Sex: Female

DRUGS (3)
  1. CISPLATIN. [Suspect]
     Active Substance: CISPLATIN
     Indication: CERVIX CARCINOMA
     Dosage: 40 MILLIGRAM/SQ. METER, CYCLE ONCE WEEKLY; RECEIVED 6 CYCLES
     Route: 065
  2. NELFINAVIR [Suspect]
     Active Substance: NELFINAVIR
     Indication: CERVIX CARCINOMA
     Dosage: 875 MILLIGRAM, BID
     Route: 048
  3. NELFINAVIR [Suspect]
     Active Substance: NELFINAVIR
     Dosage: 1250 MILLIGRAM, BID
     Route: 048

REACTIONS (2)
  - Nausea [Recovering/Resolving]
  - Ileus [Recovering/Resolving]
